FAERS Safety Report 7940937-X (Version None)
Quarter: 2011Q4

REPORT INFORMATION
  Report Type: 
  Country: None (occurrence: None)
  Receive Date: 20111122
  Receipt Date: 20111115
  Transmission Date: 20120403
  Serious: Yes (Death, Other)
  Sender: FDA-Public Use
  Company Number: 2006EU002682

PATIENT
  Age: 47 Year
  Sex: Female

DRUGS (2)
  1. PROTOPIC [Suspect]
     Dosage: TOPICAL
     Route: 061
     Dates: start: 20050228, end: 20050330
  2. NEORAL [Concomitant]

REACTIONS (4)
  - MYCOSIS FUNGOIDES [None]
  - SUPERINFECTION [None]
  - SEPTIC SHOCK [None]
  - DERMATITIS EXFOLIATIVE [None]
